FAERS Safety Report 5085245-2 (Version None)
Quarter: 2006Q3

REPORT INFORMATION
  Report Type: 
  Country: None (occurrence: None)
  Receive Date: 20060816
  Receipt Date: 20060731
  Transmission Date: 20061208
  Serious: Yes (Death, Hospitalization, Other)
  Sender: FDA-Public Use
  Company Number: 2006AL002044

PATIENT
  Age: 81 Year
  Sex: Female

DRUGS (6)
  1. IBUPROFEN [Suspect]
     Indication: PAIN IN EXTREMITY
  2. DICLOFENAC SODIUM DELAYED-RELEASE TABLETS, 75 MG (PUREPAC) (DICLOFENAC [Suspect]
     Indication: PAIN IN EXTREMITY
  3. CITALOPRAM [Concomitant]
  4. ANASTROZOLE [Concomitant]
  5. LORMETAZEPAM [Concomitant]
  6. TRIMETHOPRIM [Concomitant]

REACTIONS (5)
  - ASTHENIA [None]
  - GASTROINTESTINAL HAEMORRHAGE [None]
  - LETHARGY [None]
  - MYOCARDIAL INFARCTION [None]
  - URINARY TRACT INFECTION [None]
